FAERS Safety Report 24079979 (Version 1)
Quarter: 2024Q3

REPORT INFORMATION
  Report Type: Spontaneous
  Country: GB (occurrence: GB)
  Receive Date: 20240711
  Receipt Date: 20240711
  Transmission Date: 20241016
  Serious: Yes (Other)
  Sender: AUROBINDO
  Company Number: GB-MHRA-MED-202405031445348430-MQBPW

PATIENT
  Age: 60 Year
  Sex: Male

DRUGS (2)
  1. LINEZOLID [Suspect]
     Active Substance: LINEZOLID
     Indication: Gastrointestinal infection
     Dosage: 600 MILLIGRAM, TWO TIMES A DAY
     Route: 065
     Dates: start: 20240422, end: 20240501
  2. LINEZOLID [Suspect]
     Active Substance: LINEZOLID
     Indication: Gastrointestinal infection
     Dosage: 600 MILLIGRAM, TWO TIMES A DAY
     Route: 065
     Dates: start: 20240422, end: 20240501

REACTIONS (1)
  - Blood lactic acid [Recovering/Resolving]

NARRATIVE: CASE EVENT DATE: 20240424
